FAERS Safety Report 17569308 (Version 6)
Quarter: 2020Q4

REPORT INFORMATION
  Report Type: Spontaneous
  Country: US (occurrence: US)
  Receive Date: 20200322
  Receipt Date: 20201117
  Transmission Date: 20210113
  Serious: Yes (Hospitalization)
  Sender: FDA-Public Use
  Company Number: US-TEVA-2020-US-1207726

PATIENT
  Age: 43 Year
  Sex: Male
  Weight: 54.4 kg

DRUGS (3)
  1. EPOPROSTENOL TEVA [Suspect]
     Active Substance: EPOPROSTENOL SODIUM
     Dosage: CONTINUOUS, STRENGTH: 1.5 MG/VIAL/EPOPROSTENOL DOSE 76 NG PER KG PER MIN
     Route: 042
     Dates: start: 20200722
  2. OPSUMIT [Concomitant]
     Active Substance: MACITENTAN
  3. EPOPROSTENOL TEVA [Suspect]
     Active Substance: EPOPROSTENOL SODIUM
     Dosage: DOSE AND ROUTE: EPOPROSTENOL DOSE 70 NG PER KG PER MIN FREQUENCY: CONTINUOUS, STRENGTH: 1.5 MG/VIAL
     Route: 065
     Dates: start: 20161004

REACTIONS (13)
  - Loss of consciousness [Recovered/Resolved]
  - Eye contusion [Unknown]
  - Dysstasia [Unknown]
  - Hospitalisation [Unknown]
  - Biliary catheter insertion [Unknown]
  - Medical procedure [Unknown]
  - Fatigue [Unknown]
  - Head injury [Unknown]
  - Liver disorder [Unknown]
  - Renal failure [Unknown]
  - Fall [Unknown]
  - Pyrexia [Unknown]
  - Sepsis [Unknown]

NARRATIVE: CASE EVENT DATE: 20201028
